FAERS Safety Report 5621102-8 (Version None)
Quarter: 2008Q1

REPORT INFORMATION
  Report Type: 
  Country: None (occurrence: None)
  Receive Date: 20080114
  Receipt Date: 20070108
  Transmission Date: 20080703
  Serious: Yes (Hospitalization, Disabling)
  Sender: FDA-Public Use
  Company Number: A03200700234

PATIENT
  Age: 85 Year
  Sex: Female
  Weight: 45.3597 kg

DRUGS (4)
  1. PLAVIX [Suspect]
     Indication: CEREBROVASCULAR ACCIDENT
     Dosage: 75 MG QD-ORAL
     Route: 048
     Dates: start: 20051101, end: 20070101
  2. ACETYLSALICYLIC ACID SRT [Suspect]
  3. OMEPRAZOLE [Concomitant]
  4. VITAMINS [Concomitant]

REACTIONS (3)
  - CONTUSION [None]
  - SKIN HAEMORRHAGE [None]
  - TRANSIENT ISCHAEMIC ATTACK [None]
